FAERS Safety Report 13349852 (Version 1)
Quarter: 2017Q1

REPORT INFORMATION
  Report Type: Spontaneous
  Country: US (occurrence: US)
  Receive Date: 20170320
  Receipt Date: 20170320
  Transmission Date: 20170429
  Serious: Yes (Hospitalization, Other)
  Sender: FDA-Public Use
  Company Number: US-ROCHE-1905533

PATIENT
  Age: 61 Year
  Sex: Male
  Weight: 69.92 kg

DRUGS (4)
  1. VALCYTE [Suspect]
     Active Substance: VALGANCICLOVIR HYDROCHLORIDE
     Indication: CYTOMEGALOVIRUS INFECTION
     Dosage: TOOK FOR 6 MONTHS 2 IN THE MORNING AND 2 AT NIGHT ;ONGOING: NO
     Route: 048
     Dates: start: 20151213, end: 201606
  2. VALCYTE [Suspect]
     Active Substance: VALGANCICLOVIR HYDROCHLORIDE
     Dosage: 1 IN THE MORNING AND ONE AT NIGHT
     Route: 048
     Dates: start: 201610, end: 20170212
  3. INSULIN [Concomitant]
     Active Substance: INSULIN NOS
     Indication: DIABETES MELLITUS
     Dosage: ONGOING;YES
     Route: 065
  4. IMMUNOSUPPRESSANTS [Concomitant]
     Active Substance: UNSPECIFIED INGREDIENT
     Indication: RENAL TRANSPLANT
     Dosage: ONGOING;YES
     Route: 048

REACTIONS (5)
  - Diarrhoea [Recovered/Resolved]
  - Cytomegalovirus viraemia [Not Recovered/Not Resolved]
  - Gallbladder disorder [Recovered/Resolved]
  - Gastric disorder [Recovered/Resolved]
  - Localised infection [Recovering/Resolving]

NARRATIVE: CASE EVENT DATE: 201610
